FAERS Safety Report 7687909-0 (Version None)
Quarter: 2011Q3

REPORT INFORMATION
  Report Type: 
  Country: None (occurrence: None)
  Receive Date: 20110817
  Receipt Date: 20110809
  Transmission Date: 20111222
  Serious: Yes (Other)
  Sender: FDA-Public Use
  Company Number: JP-AMGEN-JPNSP2011040980

PATIENT
  Age: 64 Year
  Sex: Female

DRUGS (2)
  1. ENBREL [Suspect]
     Indication: RHEUMATOID ARTHRITIS
     Dosage: UNK
     Route: 058
  2. PREDNISOLONE [Suspect]
     Dosage: 6 MG/DAY
     Route: 048

REACTIONS (4)
  - IMPAIRED HEALING [None]
  - ARTHRODESIS [None]
  - POST PROCEDURAL INFECTION [None]
  - SKIN INFECTION [None]
